FAERS Safety Report 11440965 (Version 1)
Quarter: 2015Q3

REPORT INFORMATION
  Report Type: Spontaneous
  Country: US (occurrence: None)
  Receive Date: 20150831
  Receipt Date: 20150831
  Transmission Date: 20151125
  Serious: Yes (Hospitalization)
  Sender: FDA-Public Use
  Company Number: None

PATIENT
  Age: 15 Year
  Sex: Male
  Weight: 87.3 kg

DRUGS (6)
  1. DAUNORUBICIN [Suspect]
     Active Substance: DAUNORUBICIN
     Dates: end: 20150812
  2. ONCASPAR [Suspect]
     Active Substance: PEGASPARGASE
     Dosage: 5250 UNIT
     Dates: end: 20150808
  3. CYTARABINE. [Suspect]
     Active Substance: CYTARABINE
     Dates: end: 20150803
  4. VINCRISTINE SULFATE. [Suspect]
     Active Substance: VINCRISTINE SULFATE
     Dates: end: 20150812
  5. PREDNISONE. [Suspect]
     Active Substance: PREDNISONE
     Dates: end: 20150819
  6. METHOTREXATE [Suspect]
     Active Substance: METHOTREXATE
     Dates: end: 20150812

REACTIONS (7)
  - Superior sagittal sinus thrombosis [None]
  - Cerebral haemorrhage [None]
  - Seizure [None]
  - Thrombocytopenia [None]
  - Cerebrovascular accident [None]
  - Hemiparesis [None]
  - Anaemia [None]

NARRATIVE: CASE EVENT DATE: 20150819
